FAERS Safety Report 21228147 (Version 1)
Quarter: 2022Q3

REPORT INFORMATION
  Report Type: Spontaneous
  Country: US (occurrence: None)
  Receive Date: 20220817
  Receipt Date: 20220817
  Transmission Date: 20221026
  Serious: Yes (Other)
  Sender: FDA-Public Use
  Company Number: None

PATIENT
  Sex: Female

DRUGS (3)
  1. MAKENA [Suspect]
     Active Substance: HYDROXYPROGESTERONE CAPROATE
     Indication: Pregnancy
     Dosage: 275 MG/1.1ML SUBCUTANEOUS?INJECT 1.1ML  (ONE AUTO-INJECTIOR) SUBCUTANEOUSLY EVERY 7 DAYS??
     Route: 058
     Dates: start: 20220721
  2. LABETALOL [Concomitant]
     Active Substance: LABETALOL\LABETALOL HYDROCHLORIDE
  3. VITAMINS [Concomitant]
     Active Substance: VITAMINS

REACTIONS (2)
  - Abortion spontaneous [None]
  - Exposure during pregnancy [None]
